FAERS Safety Report 7792481-0 (Version None)
Quarter: 2011Q4

REPORT INFORMATION
  Report Type: 
  Country: None (occurrence: None)
  Receive Date: 20111003
  Receipt Date: 20110927
  Transmission Date: 20120403
  Serious: Yes (Death, Other)
  Sender: FDA-Public Use
  Company Number: US-PFIZER INC-2010022704

PATIENT
  Sex: Male

DRUGS (1)
  1. CHANTIX [Suspect]
     Indication: SMOKING CESSATION THERAPY
     Dosage: 0.5MG/1.0 MG  UNK
     Route: 048
     Dates: start: 20080110, end: 20080221

REACTIONS (5)
  - ANXIETY [None]
  - INSOMNIA [None]
  - COMPLETED SUICIDE [None]
  - DEPRESSION [None]
  - ABNORMAL BEHAVIOUR [None]
